FAERS Safety Report 15253830 (Version 4)
Quarter: 2018Q4

REPORT INFORMATION
  Report Type: Report from Study
  Country: IT (occurrence: IT)
  Receive Date: 20180808
  Receipt Date: 20181012
  Transmission Date: 20190204
  Serious: Yes (Hospitalization, Other)
  Sender: FDA-Public Use
  Company Number: IT-TEVA-740208ACC

PATIENT
  Age: 82 Year
  Sex: Male

DRUGS (9)
  1. ZALTRAP [Suspect]
     Active Substance: ZIV-AFLIBERCEPT
     Indication: COLON CANCER METASTATIC
     Route: 042
     Dates: start: 20150624, end: 20150624
  2. FOLINIC ACID [Suspect]
     Active Substance: LEUCOVORIN
     Indication: COLON CANCER METASTATIC
     Route: 042
     Dates: start: 20150624, end: 20150624
  3. FLUOROURACIL. [Suspect]
     Active Substance: FLUOROURACIL
     Indication: COLORECTAL CANCER METASTATIC
     Route: 040
     Dates: start: 20150624, end: 20150624
  4. PEGYLATED LIPOSOMAL IRINOTECAN [Suspect]
     Active Substance: IRINOTECAN HYDROCHLORIDE
     Indication: COLON CANCER METASTATIC
     Route: 042
     Dates: start: 20150624, end: 20150624
  5. INSULIN [Concomitant]
     Active Substance: INSULIN NOS
     Indication: PRODUCT USED FOR UNKNOWN INDICATION
     Dates: start: 2014
  6. FLUOROURACIL. [Suspect]
     Active Substance: FLUOROURACIL
     Route: 041
     Dates: start: 20150624, end: 20150624
  7. ZALTRAP [Suspect]
     Active Substance: ZIV-AFLIBERCEPT
     Route: 065
     Dates: start: 20160224, end: 20160224
  8. ZANTAC [Concomitant]
     Active Substance: RANITIDINE HYDROCHLORIDE
     Indication: PRODUCT USED FOR UNKNOWN INDICATION
     Dates: start: 20150624
  9. GONADORELIN [Concomitant]
     Active Substance: GONADORELIN
     Indication: PRODUCT USED FOR UNKNOWN INDICATION
     Dates: start: 20160731

REACTIONS (2)
  - Intestinal obstruction [Recovered/Resolved]
  - Asthenia [Recovered/Resolved]

NARRATIVE: CASE EVENT DATE: 20160314
